FAERS Safety Report 4444626-8 (Version None)
Quarter: 2004Q3

REPORT INFORMATION
  Report Type: 
  Country: None (occurrence: None)
  Receive Date: 20040902
  Receipt Date: 20040819
  Transmission Date: 20050211
  Serious: Yes (Hospitalization, Other)
  Sender: FDA-Public Use
  Company Number: 2004226993US

PATIENT
  Age: 100 Year
  Sex: Female
  Weight: 91.6 kg

DRUGS (20)
  1. BEXTRA [Suspect]
     Indication: CHEST WALL PAIN
     Dosage: 10 MG, QD
     Dates: start: 20040616, end: 20040622
  2. ALTACE [Concomitant]
  3. METOPROLOL [Concomitant]
  4. WELLBUTRIN SR [Concomitant]
  5. CRESTOR [Concomitant]
  6. METFORMIN HCL [Concomitant]
  7. MULTIVITAMIN [Concomitant]
  8. L-LYSINE [Concomitant]
  9. DHEA (PRASTERONE) [Concomitant]
  10. GLUCOSAMINE W/CHONDROITIN SULFATES (MANGANESE) [Concomitant]
  11. ASPIRIN [Concomitant]
  12. VITAMIN B-COMPLEX WITH VITAMIN C [Concomitant]
  13. LECITHIN [Concomitant]
  14. CRANBERRY [Concomitant]
  15. FISH OIL (FISH OIL) [Concomitant]
  16. GARLIC (GARLIC) [Concomitant]
  17. VITAMIN E [Concomitant]
  18. CITRACAL (CALCIUM CITRATE) [Concomitant]
  19. TUMS (MAGNESIUM CARBONATE, MAGNESIUM TRISILICATE) [Concomitant]
  20. ADVIL [Concomitant]

REACTIONS (2)
  - DYSPNOEA [None]
  - HYPERSENSITIVITY [None]
